FAERS Safety Report 4384981-0 (Version None)
Quarter: 2004Q2

REPORT INFORMATION
  Report Type: 
  Country: None (occurrence: None)
  Receive Date: 20040625
  Receipt Date: 20040615
  Transmission Date: 20050107
  Serious: Yes (Hospitalization)
  Sender: FDA-Public Use
  Company Number: US-BRISTOL-MYERS SQUIBB COMPANY-12614681

PATIENT
  Age: 45 Year
  Sex: Male
  Weight: 76 kg

DRUGS (3)
  1. IXABEPILONE [Concomitant]
     Indication: PANCREATIC CARCINOMA
     Dosage: INITIAL TX DATE:21-FEB-03/DOSE REDUCED/DELAYED FOR 14 DAYS/THEN D/C'D
     Route: 042
     Dates: start: 20040412, end: 20040412
  2. COUMADIN [Suspect]
  3. OXYCONTIN [Suspect]

REACTIONS (8)
  - ABDOMINAL PAIN [None]
  - CONSTIPATION [None]
  - HAEMATEMESIS [None]
  - HAEMOGLOBIN DECREASED [None]
  - PERIPHERAL SENSORY NEUROPATHY [None]
  - PROTHROMBIN TIME PROLONGED [None]
  - VOMITING [None]
  - WHITE BLOOD CELL COUNT DECREASED [None]
